FAERS Safety Report 9916582 (Version 3)
Quarter: 2014Q1

REPORT INFORMATION
  Report Type: Spontaneous
  Country: US (occurrence: US)
  Receive Date: 20140221
  Receipt Date: 20140318
  Transmission Date: 20141002
  Serious: Yes (Other)
  Sender: FDA-Public Use
  Company Number: US-BAYER-2014-026397

PATIENT
  Age: 27 Year
  Sex: Female
  Weight: 113.83 kg

DRUGS (1)
  1. MIRENA [Suspect]
     Indication: CONTRACEPTION
     Dosage: 20 MCG/24HR, CONT
     Route: 015
     Dates: start: 20060807, end: 20090310

REACTIONS (5)
  - Uterine perforation [None]
  - Menstruation irregular [None]
  - Injury [None]
  - Pain [None]
  - Emotional distress [None]
